FAERS Safety Report 6342313-2 (Version None)
Quarter: 2009Q3

REPORT INFORMATION
  Report Type: 
  Country: None (occurrence: None)
  Receive Date: 20090907
  Receipt Date: 20080603
  Transmission Date: 20100115
  Serious: Yes (Hospitalization, Other)
  Sender: FDA-Public Use
  Company Number: US-ASTRAZENECA-2008UW00354

PATIENT
  Age: 25760 Day
  Sex: Female
  Weight: 39.5 kg

DRUGS (37)
  1. SEROQUEL [Suspect]
     Indication: PSYCHOTIC DISORDER
     Route: 048
     Dates: start: 20030101, end: 20030701
  2. SEROQUEL [Suspect]
     Indication: DEMENTIA ALZHEIMER'S TYPE
     Route: 048
     Dates: start: 20030101, end: 20030701
  3. SEROQUEL [Suspect]
     Indication: DEMENTIA
     Route: 048
     Dates: start: 20030101, end: 20030701
  4. SEROQUEL [Suspect]
     Route: 048
     Dates: start: 20030125
  5. SEROQUEL [Suspect]
     Route: 048
     Dates: start: 20030125
  6. SEROQUEL [Suspect]
     Route: 048
     Dates: start: 20030125
  7. SEROQUEL [Suspect]
     Route: 048
     Dates: start: 20041101, end: 20041201
  8. SEROQUEL [Suspect]
     Route: 048
     Dates: start: 20041101, end: 20041201
  9. SEROQUEL [Suspect]
     Route: 048
     Dates: start: 20041101, end: 20041201
  10. SEROQUEL [Suspect]
     Route: 048
     Dates: start: 20050801, end: 20051101
  11. SEROQUEL [Suspect]
     Route: 048
     Dates: start: 20050801, end: 20051101
  12. SEROQUEL [Suspect]
     Route: 048
     Dates: start: 20050801, end: 20051101
  13. ZOLOFT [Concomitant]
     Dates: start: 20030101
  14. ABILIFY [Concomitant]
     Dates: start: 20050401, end: 20050601
  15. HALDOL [Concomitant]
     Dates: start: 20041101
  16. HALDOL [Concomitant]
     Dates: start: 20060101
  17. RISPERDAL [Concomitant]
     Dates: start: 20040301, end: 20041101
  18. RISPERDAL [Concomitant]
     Dates: start: 20061101, end: 20070101
  19. RISPERDAL [Concomitant]
  20. ZYPREXA [Concomitant]
     Dosage: 7.5 MG, 10 MG, 5 MG
     Dates: start: 20040101, end: 20060101
  21. RESTORIL [Concomitant]
     Dates: start: 20030101, end: 20040101
  22. LORAZEPAM [Concomitant]
     Dates: start: 20030101
  23. SYMBIAX [Concomitant]
     Dosage: 6-25 MG
     Dates: start: 20040101, end: 20050101
  24. DEPAKOTE [Concomitant]
     Dates: start: 20040101, end: 20050101
  25. ARICEPT [Concomitant]
     Dosage: 5 MG, 10 MG
     Dates: start: 20020101, end: 20030101
  26. ALPRAZOLAM [Concomitant]
     Dates: start: 20010101
  27. NAMENDA [Concomitant]
     Dates: start: 20050101
  28. TEMAZEPAM [Concomitant]
     Dates: start: 20040101, end: 20050101
  29. MIRTAZAPINE [Concomitant]
     Dates: start: 20050101
  30. BUSPIRONE HCL [Concomitant]
     Dates: start: 20050101
  31. CLONAZEPAM [Concomitant]
     Dates: start: 20050101
  32. TRIMETHOBENZAMIDE HCL [Concomitant]
     Route: 030
     Dates: start: 20030121
  33. ASPIRIN [Concomitant]
     Route: 048
     Dates: start: 20030127
  34. PRAVACHOL [Concomitant]
     Dates: start: 20030111
  35. FERROUS SULFATE TAB [Concomitant]
     Route: 048
     Dates: start: 20060120
  36. DIGOXIN [Concomitant]
     Route: 048
     Dates: start: 20060729
  37. ZINC SULFATE [Concomitant]
     Route: 048
     Dates: start: 20060729

REACTIONS (17)
  - BLOOD CHOLESTEROL INCREASED [None]
  - BUNDLE BRANCH BLOCK RIGHT [None]
  - CARDIAC DISORDER [None]
  - CARDIAC OPERATION [None]
  - CARDIAC VALVE DISEASE [None]
  - COMA [None]
  - CONFUSIONAL STATE [None]
  - COORDINATION ABNORMAL [None]
  - DECUBITUS ULCER [None]
  - GAIT DISTURBANCE [None]
  - HYPERGLYCAEMIA [None]
  - PRESYNCOPE [None]
  - SEPTIC SHOCK [None]
  - SPEECH DISORDER [None]
  - SYNCOPE [None]
  - TYPE 2 DIABETES MELLITUS [None]
  - URINARY TRACT INFECTION [None]
